FAERS Safety Report 19035096 (Version 1)
Quarter: 2021Q1

REPORT INFORMATION
  Report Type: Other
  Country: US (occurrence: US)
  Receive Date: 20210320
  Receipt Date: 20210320
  Transmission Date: 20210420
  Serious: No
  Sender: FDA-Public Use
  Company Number: US-ACORDA-ACO_167546_2021

PATIENT
  Sex: Female

DRUGS (5)
  1. INBRIJA [Suspect]
     Active Substance: LEVODOPA
     Indication: ON AND OFF PHENOMENON
  2. ENTACAPONE. [Concomitant]
     Active Substance: ENTACAPONE
     Indication: PRODUCT USED FOR UNKNOWN INDICATION
     Dosage: 20 MILLIGRAM, 1 PILL 3X/DAY
     Route: 065
  3. INBRIJA [Suspect]
     Active Substance: LEVODOPA
     Indication: PARKINSON^S DISEASE
     Dosage: 84 MILLIGRAM, PRN. NOT TO EXCEED 5 DOSES A DAY
     Dates: start: 20210113
  4. CARBIDOPA/LEVODOPA [Concomitant]
     Active Substance: CARBIDOPA\LEVODOPA
     Indication: PRODUCT USED FOR UNKNOWN INDICATION
     Dosage: 2 PILLS 4X/DAY
     Route: 065
  5. PRAMIPEXOLE. [Concomitant]
     Active Substance: PRAMIPEXOLE
     Indication: PRODUCT USED FOR UNKNOWN INDICATION
     Dosage: .5 MILLIGRAM 1 PILL 3X/DAY
     Route: 065

REACTIONS (3)
  - Cough [Unknown]
  - Incorrect dose administered by device [Unknown]
  - Product residue present [Unknown]
